FAERS Safety Report 8596660-4 (Version None)
Quarter: 2012Q3

REPORT INFORMATION
  Report Type: 
  Country: None (occurrence: None)
  Receive Date: 20120815
  Receipt Date: 20120807
  Transmission Date: 20120928
  Serious: Yes (Hospitalization)
  Sender: FDA-Public Use
  Company Number: US-BAXTER-2012BAX013033

PATIENT
  Sex: Female

DRUGS (2)
  1. DIANEAL [Suspect]
     Indication: PERITONEAL DIALYSIS
     Route: 033
     Dates: end: 20120725
  2. DIANEAL [Suspect]
     Route: 033
     Dates: end: 20120725

REACTIONS (2)
  - FUNGAL PERITONITIS [None]
  - VULVOVAGINAL MYCOTIC INFECTION [None]
